FAERS Safety Report 20553597 (Version 1)
Quarter: 2022Q1

REPORT INFORMATION
  Report Type: Spontaneous
  Country: CN (occurrence: CN)
  Receive Date: 20220304
  Receipt Date: 20220304
  Transmission Date: 20220423
  Serious: Yes (Life-Threatening, Other)
  Sender: FDA-Public Use
  Company Number: CN-Fresenius Kabi-FK202202515

PATIENT
  Age: 62 Year
  Sex: Male
  Weight: 90 kg

DRUGS (6)
  1. TRANEXAMIC ACID [Suspect]
     Active Substance: TRANEXAMIC ACID
     Indication: Haemorrhage
     Route: 042
  2. ETOMIDATE [Concomitant]
     Active Substance: ETOMIDATE
     Indication: Induction of anaesthesia
     Route: 042
  3. FENTANYL [Concomitant]
     Active Substance: FENTANYL
     Indication: Induction of anaesthesia
     Route: 065
  4. ROCURONIUM [Concomitant]
     Active Substance: ROCURONIUM BROMIDE
     Indication: Induction of anaesthesia
     Route: 065
  5. PROPOFOL [Concomitant]
     Active Substance: PROPOFOL
     Indication: Maintenance of anaesthesia
     Dosage: 6MG/KG/H
     Route: 065
  6. REMIFENTANIL [Concomitant]
     Active Substance: REMIFENTANIL
     Indication: Maintenance of anaesthesia
     Dosage: 0.2MG/KG/MIN
     Route: 065

REACTIONS (4)
  - Circulatory collapse [Recovered/Resolved]
  - Haemoperitoneum [Recovered/Resolved]
  - Acute kidney injury [Recovered/Resolved]
  - Intracardiac thrombus [Recovered/Resolved]
